FAERS Safety Report 9626726 (Version 4)
Quarter: 2013Q4

REPORT INFORMATION
  Report Type: Report from Study
  Country: IE (occurrence: IE)
  Receive Date: 20131016
  Receipt Date: 20131226
  Transmission Date: 20140711
  Serious: Yes (Hospitalization)
  Sender: FDA-Public Use
  Company Number: IE-TEVA-436174USA

PATIENT
  Age: 69 Year
  Sex: Male
  Weight: 78 kg

DRUGS (8)
  1. BENDAMUSTINE [Suspect]
     Indication: MANTLE CELL LYMPHOMA
     Dosage: DAY 1 AND 2 OF 28 DAY CYCLE.
     Route: 042
     Dates: start: 20130724
  2. BENDAMUSTINE [Suspect]
     Dosage: DAY 1 AND 2 OF A 28 DAY CYCLE.
     Route: 042
     Dates: start: 20130918
  3. AMIODARONE [Suspect]
     Indication: ATRIAL FIBRILLATION
  4. RITUXIMAB [Suspect]
     Indication: MANTLE CELL LYMPHOMA
     Dosage: ONCE EVERY 28 DAYS.
     Route: 042
     Dates: start: 20130724
  5. RITUXIMAB [Suspect]
     Route: 042
     Dates: start: 20130917, end: 20130917
  6. IBRUTINIB/PLACEBO [Suspect]
     Indication: MANTLE CELL LYMPHOMA
     Dosage: 560 MILLIGRAM DAILY;
     Route: 048
     Dates: start: 20130724, end: 20130922
  7. IBRUTINIB/PLACEBO [Suspect]
     Dosage: 560 MILLIGRAM DAILY;
     Route: 048
     Dates: start: 20131020
  8. LEVOTHYROXINE SODIUM [Concomitant]
     Indication: HYPOTHYROIDISM

REACTIONS (2)
  - Atrial fibrillation [Not Recovered/Not Resolved]
  - Abdominal pain upper [Recovered/Resolved with Sequelae]
